FAERS Safety Report 17561361 (Version 1)
Quarter: 2020Q1

REPORT INFORMATION
  Report Type: Spontaneous
  Country: US (occurrence: US)
  Receive Date: 20200319
  Receipt Date: 20200319
  Transmission Date: 20200409
  Serious: Yes (Disabling)
  Sender: FDA-Public Use
  Company Number: US-VERTEX PHARMACEUTICALS-2020-005330

PATIENT
  Age: 9 Year
  Sex: Male
  Weight: 39 kg

DRUGS (2)
  1. AZTREONAM LYSINE [Suspect]
     Active Substance: AZTREONAM LYSINE
     Indication: CYSTIC FIBROSIS
     Dosage: UNK, 28 DAYS ON AND THEN 28 DAYS OFF
  2. SYMDEKO [Suspect]
     Active Substance: IVACAFTOR\TEZACAFTOR
     Indication: CYSTIC FIBROSIS
     Dosage: (1 YELLOW TABLET) 100MG TEZACAFTOR/150MG IVACAFTOR, AM; (1 BLUE TABLET)150MG IVACAFTOR PM
     Route: 048
     Dates: start: 201912

REACTIONS (1)
  - Influenza [Recovered/Resolved]

NARRATIVE: CASE EVENT DATE: 202003
